FAERS Safety Report 7946847-6 (Version None)
Quarter: 2011Q4

REPORT INFORMATION
  Report Type: 
  Country: None (occurrence: None)
  Receive Date: 20111129
  Receipt Date: 20111121
  Transmission Date: 20120403
  Serious: Yes (Hospitalization, Other)
  Sender: FDA-Public Use
  Company Number: PHHY2011JP46746

PATIENT
  Sex: Female

DRUGS (2)
  1. AFINITOR [Suspect]
     Indication: METASTATIC RENAL CELL CARCINOMA
     Dosage: 5 MG, DAILY
     Route: 048
     Dates: start: 20110121, end: 20110127
  2. AFINITOR [Suspect]
     Dosage: 5 MG, QOD
     Route: 048
     Dates: start: 20110214, end: 20110531

REACTIONS (3)
  - GENERALISED OEDEMA [None]
  - RASH [None]
  - BLOOD CHOLESTEROL INCREASED [None]
